FAERS Safety Report 19376814 (Version 1)
Quarter: 2021Q2

REPORT INFORMATION
  Report Type: Spontaneous
  Country: US (occurrence: US)
  Receive Date: 20210605
  Receipt Date: 20210605
  Transmission Date: 20210717
  Serious: Yes (Other)
  Sender: FDA-Public Use
  Company Number: US-CADILA HEALTHCARE LIMITED-US-ZYDUS-066379

PATIENT

DRUGS (21)
  1. TEMOZOLOMIDE. [Suspect]
     Active Substance: TEMOZOLOMIDE
     Dosage: 100 MILLIGRAM/SQ. METER
     Route: 048
     Dates: start: 20190506, end: 20190510
  2. HYDROMORPHONE [Suspect]
     Active Substance: HYDROMORPHONE
     Indication: CHEMOTHERAPY
     Dosage: UNK MILLIGRAM
     Route: 042
  3. TEMOZOLOMIDE. [Suspect]
     Active Substance: TEMOZOLOMIDE
     Dosage: 100 MILLIGRAM/SQ. METER
     Route: 048
     Dates: start: 20190604, end: 20190608
  4. IRINOTECAN [Suspect]
     Active Substance: IRINOTECAN
     Dosage: 50 MILLIGRAM/SQ. METER
     Route: 042
     Dates: start: 20190722, end: 20190726
  5. TEMOZOLOMIDE. [Suspect]
     Active Substance: TEMOZOLOMIDE
     Indication: NEUROBLASTOMA
     Dosage: 100 MILLIGRAM/SQ. METER
     Route: 048
     Dates: start: 20190416, end: 20190420
  6. IRINOTECAN [Suspect]
     Active Substance: IRINOTECAN
     Dosage: 50 MILLIGRAM/SQ. METER
     Route: 042
     Dates: start: 20190416, end: 20190420
  7. ATROPINE. [Suspect]
     Active Substance: ATROPINE
     Indication: DIARRHOEA
     Dosage: UNK
     Route: 065
  8. DINUTUXIMAB [Suspect]
     Active Substance: DINUTUXIMAB
     Dosage: 17.5 MILLIGRAM/SQ. METER
     Route: 042
     Dates: start: 20190605, end: 20190608
  9. CYCLOPHOSPHAMIDE. [Suspect]
     Active Substance: CYCLOPHOSPHAMIDE
     Indication: NEUROBLASTOMA
     Dosage: UNK
     Route: 065
  10. IRINOTECAN [Suspect]
     Active Substance: IRINOTECAN
     Dosage: 50 MILLIGRAM/SQ. METER
     Route: 042
     Dates: start: 20190604, end: 20190608
  11. METHADONE [Suspect]
     Active Substance: METHADONE HYDROCHLORIDE
     Indication: PAIN
     Dosage: 2.5 MILLIGRAM, TID
     Route: 048
  12. IRINOTECAN [Suspect]
     Active Substance: IRINOTECAN
     Indication: CHEMOTHERAPY
     Dosage: 50 MILLIGRAM/SQ. METER
     Route: 042
     Dates: start: 20190506, end: 20190510
  13. TOPOTECAN [Suspect]
     Active Substance: TOPOTECAN HYDROCHLORIDE
     Indication: NEUROBLASTOMA
     Dosage: UNK
     Route: 065
  14. ETOPOSIDE. [Suspect]
     Active Substance: ETOPOSIDE
     Indication: NEUROBLASTOMA
     Dosage: UNK
     Route: 065
  15. GABAPENTIN. [Suspect]
     Active Substance: GABAPENTIN
     Indication: PRODUCT USED FOR UNKNOWN INDICATION
     Dosage: UNK
     Route: 065
  16. OXYCODONE + ACETAMINOPHEN [Suspect]
     Active Substance: ACETAMINOPHEN\OXYCODONE HYDROCHLORIDE
     Indication: PAIN
     Dosage: UNK, PRN
     Route: 048
  17. MORPHINE [Suspect]
     Active Substance: MORPHINE
     Indication: PRODUCT USED FOR UNKNOWN INDICATION
     Dosage: 1349 MILLIGRAM
     Route: 048
  18. TEMOZOLOMIDE. [Suspect]
     Active Substance: TEMOZOLOMIDE
     Dosage: 100 MILLIGRAM/SQ. METER, QD
     Route: 048
     Dates: start: 20190722, end: 20190726
  19. CISPLATIN. [Suspect]
     Active Substance: CISPLATIN
     Indication: NEUROBLASTOMA
     Dosage: UNK
     Route: 065
  20. DINUTUXIMAB [Suspect]
     Active Substance: DINUTUXIMAB
     Indication: CHEMOTHERAPY
     Dosage: 17.5 MILLIGRAM/SQ. METER
     Route: 042
     Dates: start: 20190507, end: 20190510
  21. DIPHENHYDRAMINE. [Suspect]
     Active Substance: DIPHENHYDRAMINE
     Indication: PRODUCT USED FOR UNKNOWN INDICATION
     Dosage: UNK
     Route: 065

REACTIONS (10)
  - Neuropathy peripheral [Unknown]
  - Haemodynamic instability [Unknown]
  - Constipation [Unknown]
  - Pain [Unknown]
  - Infusion related reaction [Unknown]
  - Neuralgia [Unknown]
  - Respiratory depression [Unknown]
  - Mental status changes [Unknown]
  - Sedation [Unknown]
  - Product use in unapproved indication [Unknown]
